FAERS Safety Report 7738217-0 (Version None)
Quarter: 2011Q3

REPORT INFORMATION
  Report Type: 
  Country: None (occurrence: None)
  Receive Date: 20110906
  Receipt Date: 20110822
  Transmission Date: 20111222
  Serious: Yes (Death, Other)
  Sender: FDA-Public Use
  Company Number: FK201101768

PATIENT
  Age: 4 Year
  Sex: Male

DRUGS (3)
  1. IMMUNE GLOBULIN (HUMAN) [Concomitant]
  2. ACYCLOVIR SODIUM [Suspect]
     Indication: PROPHYLAXIS
     Dosage: 45 MG/KG, PER BW/D, INTRAVENOUS
     Route: 042
  3. DIURETIC THERAPY [Concomitant]

REACTIONS (10)
  - PULMONARY OEDEMA [None]
  - MULTI-ORGAN FAILURE [None]
  - LEUKOCYTOSIS [None]
  - SKIN LESION [None]
  - PULMONARY HAEMORRHAGE [None]
  - VARICELLA VIRUS TEST POSITIVE [None]
  - DISSEMINATED INTRAVASCULAR COAGULATION [None]
  - RESPIRATORY DISTRESS [None]
  - MECHANICAL VENTILATION [None]
  - LUNG INFILTRATION [None]
